FAERS Safety Report 4922458-1 (Version None)
Quarter: 2006Q1

REPORT INFORMATION
  Report Type: 
  Country: None (occurrence: None)
  Receive Date: 20060224
  Receipt Date: 20060206
  Transmission Date: 20060701
  Serious: Yes (Hospitalization)
  Sender: FDA-Public Use
  Company Number: US-BRISTOL-MYERS SQUIBB COMPANY-13273917

PATIENT
  Age: 58 Year
  Sex: Male
  Weight: 61 kg

DRUGS (11)
  1. CETUXIMAB [Suspect]
     Indication: NON-SMALL CELL LUNG CANCER
     Route: 042
     Dates: start: 20060203, end: 20060203
  2. CARBOPLATIN [Suspect]
     Indication: NON-SMALL CELL LUNG CANCER
     Route: 042
     Dates: start: 20060203, end: 20060203
  3. TAXOL [Suspect]
     Indication: NON-SMALL CELL LUNG CANCER
     Dosage: WEEKS 1, 2, 3 OF EVERY CYCLE.
     Route: 042
     Dates: start: 20060203, end: 20060203
  4. ATIVAN [Concomitant]
     Dosage: AT HS.
     Route: 048
  5. COMPAZINE [Concomitant]
     Dosage: EVERY 6 HOURS.
     Route: 048
  6. COUMADIN [Concomitant]
  7. DILAUDID [Concomitant]
     Dosage: EVERY 3-4 HOURS.
     Route: 048
  8. KYTRIL [Concomitant]
     Dosage: EVERY 8 HOURS.
     Route: 048
  9. PREDNISONE [Concomitant]
     Route: 048
  10. TRANSDERMAL NICOTINE [Concomitant]
     Dosage: 21-14-7 MG.
     Route: 062
  11. WELLBUTRIN [Concomitant]
     Route: 048

REACTIONS (3)
  - ABDOMINAL PAIN [None]
  - NAUSEA [None]
  - VOMITING [None]
